FAERS Safety Report 10031748 (Version 2)
Quarter: 2014Q2

REPORT INFORMATION
  Report Type: Report from Study
  Country: JP (occurrence: JP)
  Receive Date: 20140324
  Receipt Date: 20140428
  Transmission Date: 20141212
  Serious: Yes (Hospitalization)
  Sender: FDA-Public Use
  Company Number: JP-SA-2014SA033786

PATIENT
  Age: 12 Year
  Sex: Male
  Weight: 40.9 kg

DRUGS (4)
  1. THYMOGLOBULINE [Suspect]
     Indication: BONE MARROW CONDITIONING REGIMEN
     Route: 042
     Dates: start: 20130317, end: 20130320
  2. FUNGUARD [Concomitant]
     Indication: PROPHYLAXIS
     Dates: start: 20130316, end: 20130626
  3. BAKTAR [Concomitant]
     Indication: PROPHYLAXIS
     Dates: start: 20120821, end: 20130630
  4. ZOVIRAX [Concomitant]
     Indication: PROPHYLAXIS
     Dates: start: 20130316, end: 20130520

REACTIONS (2)
  - Acute graft versus host disease [Not Recovered/Not Resolved]
  - Staphylococcal sepsis [Not Recovered/Not Resolved]
